FAERS Safety Report 10401601 (Version 1)
Quarter: 2014Q3

REPORT INFORMATION
  Report Type: Report from Study
  Country: US (occurrence: US)
  Receive Date: 20140822
  Receipt Date: 20140822
  Transmission Date: 20150326
  Serious: Yes (Other)
  Sender: FDA-Public Use
  Company Number: PHEH2014US016606

PATIENT
  Sex: Male
  Weight: 67.8 kg

DRUGS (1)
  1. EXJADE [Suspect]
     Active Substance: DEFERASIROX
     Indication: THALASSAEMIA
     Dosage: 2500 MG (05 TABLETS) ONCE DAILY
     Route: 048

REACTIONS (1)
  - Nephrolithiasis [Unknown]
